FAERS Safety Report 9332777 (Version 1)
Quarter: 2013Q2

REPORT INFORMATION
  Report Type: Spontaneous
  Country: US (occurrence: US)
  Receive Date: 20130606
  Receipt Date: 20130606
  Transmission Date: 20140414
  Serious: No
  Sender: FDA-Public Use
  Company Number: US-PFIZER INC-2013170091

PATIENT
  Age: 45 Year
  Sex: Female

DRUGS (7)
  1. XANAX [Suspect]
     Dosage: UNK
  2. THORAZINE [Suspect]
     Dosage: UNK
  3. STADOL [Suspect]
     Dosage: UNK
  4. TORADOL [Suspect]
     Dosage: UNK
  5. IODINE [Suspect]
     Dosage: UNK
  6. ASA [Suspect]
     Dosage: UNK
  7. ATIVAN [Suspect]
     Dosage: UNK

REACTIONS (1)
  - Drug hypersensitivity [Unknown]
